FAERS Safety Report 7128222-X (Version None)
Quarter: 2010Q4

REPORT INFORMATION
  Report Type: 
  Country: None (occurrence: None)
  Receive Date: 20101130
  Receipt Date: 20101116
  Transmission Date: 20110411
  Serious: Yes (Other)
  Sender: FDA-Public Use
  Company Number: US-AMGEN-USACT2010005286

PATIENT
  Sex: Female

DRUGS (1)
  1. ENBREL [Suspect]
     Indication: PSORIASIS
     Dates: start: 20101115

REACTIONS (5)
  - DYSPNOEA [None]
  - FATIGUE [None]
  - IRRITABLE BOWEL SYNDROME [None]
  - NEUTROPHIL COUNT INCREASED [None]
  - PYREXIA [None]
